FAERS Safety Report 19434690 (Version 1)
Quarter: 2021Q2

REPORT INFORMATION
  Report Type: Spontaneous
  Country: US (occurrence: US)
  Receive Date: 20210617
  Receipt Date: 20210617
  Transmission Date: 20210717
  Serious: No
  Sender: FDA-Public Use
  Company Number: US-ROCHE-2682561

PATIENT
  Sex: Female

DRUGS (3)
  1. ACTEMRA [Suspect]
     Active Substance: TOCILIZUMAB
     Indication: JUVENILE IDIOPATHIC ARTHRITIS
     Dosage: ACTEMRA ACTPEN, 162MG/0.9ML, ONGOING: YES
     Route: 058
     Dates: start: 20190816
  2. ACTEMRA [Suspect]
     Active Substance: TOCILIZUMAB
  3. PIROXICAM. [Concomitant]
     Active Substance: PIROXICAM
     Route: 048

REACTIONS (1)
  - Acne [Unknown]
